FAERS Safety Report 19154849 (Version 2)
Quarter: 2021Q4

REPORT INFORMATION
  Report Type: Spontaneous
  Country: US (occurrence: US)
  Receive Date: 20210419
  Receipt Date: 20211124
  Transmission Date: 20220303
  Serious: No
  Sender: FDA-Public Use
  Company Number: US-BAYER-2021-122579

PATIENT
  Age: 24 Year
  Sex: Female
  Weight: 62.132 kg

DRUGS (2)
  1. MIRENA [Suspect]
     Active Substance: LEVONORGESTREL
     Indication: Contraception
     Dosage: 20?G/DAY
     Route: 015
     Dates: start: 20180116, end: 20200311
  2. PREDNISONE [Concomitant]
     Active Substance: PREDNISONE

REACTIONS (3)
  - Unintentional medical device removal [Recovered/Resolved]
  - Smear cervix abnormal [None]
  - Cervical dysplasia [None]

NARRATIVE: CASE EVENT DATE: 20210402
